FAERS Safety Report 24611248 (Version 1)
Quarter: 2024Q4

REPORT INFORMATION
  Report Type: Spontaneous
  Country: IR (occurrence: IR)
  Receive Date: 20241113
  Receipt Date: 20241113
  Transmission Date: 20250114
  Serious: Yes (Other)
  Sender: APOTEX
  Company Number: IR-APOTEX-2024AP017611

PATIENT
  Age: 48 Year
  Sex: Female

DRUGS (1)
  1. ALENDRONATE [Suspect]
     Active Substance: ALENDRONATE SODIUM
     Indication: Osteoporosis
     Dosage: UNK (APPROXIMATELY FOR 10 YEARS)
     Route: 065

REACTIONS (2)
  - Squamous cell carcinoma of skin [Unknown]
  - Osteonecrosis of jaw [Unknown]
